FAERS Safety Report 6287201-5 (Version None)
Quarter: 2009Q3

REPORT INFORMATION
  Report Type: 
  Country: None (occurrence: None)
  Receive Date: 20090728
  Receipt Date: 20090716
  Transmission Date: 20100115
  Serious: Yes (Other)
  Sender: FDA-Public Use
  Company Number: US-PFIZER INC-2008101441

PATIENT
  Sex: Male
  Weight: 88.435 kg

DRUGS (4)
  1. GEODON [Suspect]
     Indication: BIPOLAR DISORDER
     Dosage: 120 MG, 1X/DAY
     Dates: start: 20060101
  2. LITHIUM CARBONATE [Concomitant]
  3. SYNTHROID [Concomitant]
  4. CARTIA XT [Concomitant]

REACTIONS (4)
  - FEELING DRUNK [None]
  - HALLUCINATION, VISUAL [None]
  - LETHARGY [None]
  - TREMOR [None]
